FAERS Safety Report 18051642 (Version 1)
Quarter: 2020Q3

REPORT INFORMATION
  Report Type: Spontaneous
  Country: CA (occurrence: CA)
  Receive Date: 20200721
  Receipt Date: 20200721
  Transmission Date: 20201103
  Serious: No
  Sender: FDA-Public Use
  Company Number: CA-CIPHER-2020-CA-001004

PATIENT
  Age: 41 Year
  Sex: Female

DRUGS (47)
  1. RABEPRAZOLE SODIUM. [Suspect]
     Active Substance: RABEPRAZOLE SODIUM
     Dosage: UNKNOWN DOSE
     Route: 065
  2. CEFUROXIME AXETIL. [Concomitant]
     Active Substance: CEFUROXIME AXETIL
  3. CYMBALTA [Concomitant]
     Active Substance: DULOXETINE HYDROCHLORIDE
  4. METONIA [Concomitant]
     Active Substance: METOCLOPRAMIDE
  5. AZITHROMYCIN ANHYDROUS. [Suspect]
     Active Substance: AZITHROMYCIN ANHYDROUS
     Dosage: UNKNOWN DOSE
     Route: 065
  6. ACETAMINOPHEN. [Suspect]
     Active Substance: ACETAMINOPHEN
     Dosage: DOSE UNKNOWN
     Route: 065
  7. AMOXICILLIN TRIHYDRATE [Concomitant]
     Active Substance: AMOXICILLIN
  8. INDOMETHACIN. [Suspect]
     Active Substance: INDOMETHACIN
     Dosage: UNKNOWN DOSE
     Route: 054
  9. APO?PREDNISONE [Concomitant]
     Active Substance: PREDNISONE
  10. CYCLOMEN [Concomitant]
     Active Substance: DANAZOL
  11. FLUTICASONE. [Concomitant]
     Active Substance: FLUTICASONE
  12. SUMATRIPTAN SUCCINATE. [Concomitant]
     Active Substance: SUMATRIPTAN SUCCINATE
  13. CLARITHROMYCIN. [Suspect]
     Active Substance: CLARITHROMYCIN
     Route: 065
  14. DEXAMETHASONE. [Suspect]
     Active Substance: DEXAMETHASONE
     Route: 065
  15. HYDROMORPHONE HYDROCHLORIDE. [Suspect]
     Active Substance: HYDROMORPHONE HYDROCHLORIDE
     Route: 065
  16. MOMETASONE FUROATE. [Suspect]
     Active Substance: MOMETASONE FUROATE
     Route: 045
  17. APO?LISINOPRIL [Concomitant]
     Active Substance: LISINOPRIL
  18. APO?SALVENT CFC FREE [Concomitant]
  19. MACROBID [Suspect]
     Active Substance: NITROFURANTOIN\NITROFURANTOIN MONOHYDRATE
  20. TEVA?LENOLTEC NO. 3 [Concomitant]
     Active Substance: ACETAMINOPHEN\CAFFEINE\CODEINE
  21. BOTULINUM TOXIN TYPE A [Suspect]
     Active Substance: BOTULINUM TOXIN TYPE A
     Dosage: UNKNOWN DOSE
     Route: 065
  22. SUMATRIPTAN. [Suspect]
     Active Substance: SUMATRIPTAN
     Dosage: UNKNOWN DOSE
     Route: 065
  23. ZOPICLONE [Suspect]
     Active Substance: ZOPICLONE
     Dosage: UNKNOWN DOSE
     Route: 065
  24. AMOXICILLIN. [Suspect]
     Active Substance: AMOXICILLIN
     Dosage: UNKNOWN DOSE
     Route: 065
  25. CEPHALEXIN. [Concomitant]
     Active Substance: CEPHALEXIN
  26. STATEX [Concomitant]
  27. FLUCONAZOLE. [Suspect]
     Active Substance: FLUCONAZOLE
     Dosage: UNKNOWN DOSE
     Route: 065
  28. LISINOPRIL. [Suspect]
     Active Substance: LISINOPRIL
     Dosage: UNKNOWN DOSE
     Route: 065
  29. LISINOPRIL. [Suspect]
     Active Substance: LISINOPRIL
     Dosage: UNKNOWN DOSE
     Route: 065
  30. SALBUTAMOL [Suspect]
     Active Substance: ALBUTEROL
     Indication: PRODUCT USED FOR UNKNOWN INDICATION
     Dosage: UNKNOWN DOSE
     Route: 065
  31. TOPIRAMATE. [Suspect]
     Active Substance: TOPIRAMATE
     Dosage: UNKNOWN DOSE
     Route: 065
  32. TRIMETHOPRIMTRIMETHOPRIM [Suspect]
     Active Substance: TRIMETHOPRIM
     Dosage: UNKNOWN DOSE
     Route: 061
  33. TRAMADOL HYDROCHLORIDE. [Suspect]
     Active Substance: TRAMADOL HYDROCHLORIDE
     Indication: PRODUCT USED FOR UNKNOWN INDICATION
     Dosage: UNKNOWN DOSE
     Route: 065
  34. METOCLOPRAMIDE. [Suspect]
     Active Substance: METOCLOPRAMIDE
     Route: 065
  35. TRAMADOL. [Suspect]
     Active Substance: TRAMADOL
     Dosage: UNKNOWN DOSE
     Route: 065
  36. ACETAMINOPHEN AND CODEINE [Concomitant]
     Active Substance: ACETAMINOPHEN\CODEINE PHOSPHATE
  37. NAPROXEN. [Concomitant]
     Active Substance: NAPROXEN
  38. OSELTAMIVIR [Concomitant]
     Active Substance: OSELTAMIVIR
  39. PANTOPRAZOLE SODIUM. [Concomitant]
     Active Substance: PANTOPRAZOLE SODIUM
  40. RIZATRIPTAN BENZOATE. [Concomitant]
     Active Substance: RIZATRIPTAN BENZOATE
  41. CIPROFLOXACIN. [Suspect]
     Active Substance: CIPROFLOXACIN
     Indication: MIGRAINE
     Route: 065
  42. METOCLOPRAMIDE. [Suspect]
     Active Substance: METOCLOPRAMIDE
  43. FROVA [Concomitant]
     Active Substance: FROVATRIPTAN SUCCINATE
  44. NASONEX [Concomitant]
     Active Substance: MOMETASONE FUROATE
  45. SULFATRIM [Concomitant]
     Active Substance: SULFAMETHOXAZOLE\TRIMETHOPRIM
  46. TRAMADOL HCL AND ACETAMINOPHEN [Concomitant]
     Active Substance: ACETAMINOPHEN\TRAMADOL
  47. DULOXETINE. [Suspect]
     Active Substance: DULOXETINE
     Dosage: UNKNOWN DOSE
     Route: 065

REACTIONS (4)
  - Drug ineffective [Unknown]
  - Product use in unapproved indication [Unknown]
  - Drug intolerance [Unknown]
  - Headache [Unknown]
